FAERS Safety Report 8222607-6 (Version None)
Quarter: 2012Q1

REPORT INFORMATION
  Report Type: 
  Country: None (occurrence: None)
  Receive Date: 20120312
  Receipt Date: 20120224
  Transmission Date: 20120608
  Serious: Yes (Hospitalization)
  Sender: FDA-Public Use
  Company Number: DSA_55282_2012

PATIENT
  Age: 80 Year
  Sex: Male

DRUGS (11)
  1. MYOCOR [Concomitant]
  2. AMOBAN [Concomitant]
  3. ENALAPRIL MALEATE [Suspect]
     Indication: HYPERTENSION
     Dosage: 92.5 MG BID ORAL), (7.5 MG QD ORAL)
     Route: 048
     Dates: start: 20120215, end: 20120216
  4. ENALAPRIL MALEATE [Suspect]
     Indication: HYPERTENSION
     Dosage: 92.5 MG BID ORAL), (7.5 MG QD ORAL)
     Route: 048
     Dates: start: 20120212, end: 20120214
  5. NITRODERM [Concomitant]
  6. TAMIFLU [Concomitant]
  7. LASIX [Concomitant]
  8. ACETAMINOPHEN [Concomitant]
  9. HEPARIN SODIUM [Concomitant]
  10. ROCEPHIN [Concomitant]
  11. FUTHAN [Concomitant]

REACTIONS (3)
  - URINE OUTPUT DECREASED [None]
  - BLOOD CREATINE PHOSPHOKINASE INCREASED [None]
  - ASPARTATE AMINOTRANSFERASE INCREASED [None]
